FAERS Safety Report 10694033 (Version 1)
Quarter: 2015Q1

REPORT INFORMATION
  Report Type: Spontaneous
  Country: US (occurrence: US)
  Receive Date: 20150106
  Receipt Date: 20150106
  Transmission Date: 20150721
  Serious: No
  Sender: FDA-Public Use
  Company Number: US-GLAXOSMITHKLINE-US2014036407

PATIENT
  Age: 66 Year
  Sex: Female

DRUGS (1)
  1. ABREVA [Suspect]
     Active Substance: DOCOSANOL
     Indication: ORAL HERPES
     Dosage: UNK
     Route: 061
     Dates: start: 20141207, end: 20141209

REACTIONS (3)
  - Cheilitis [Recovered/Resolved]
  - Nonspecific reaction [Recovered/Resolved]
  - Oral discomfort [Recovered/Resolved]
